FAERS Safety Report 5084493-5 (Version None)
Quarter: 2006Q3

REPORT INFORMATION
  Report Type: 
  Country: None (occurrence: None)
  Receive Date: 20060814
  Receipt Date: 20060725
  Transmission Date: 20061208
  Serious: Yes (Other)
  Sender: FDA-Public Use
  Company Number: DE200608000304

PATIENT
  Age: 59 Year
  Sex: Male

DRUGS (8)
  1. GEMCITABINE [Suspect]
     Indication: NON-SMALL CELL LUNG CANCER
     Dates: start: 19980101, end: 19980401
  2. PACLITAXEL [Suspect]
     Indication: NON-SMALL CELL LUNG CANCER
     Dates: start: 19980401, end: 19980501
  3. PACLITAXEL [Suspect]
     Indication: NON-SMALL CELL LUNG CANCER
     Dates: start: 19980630
  4. CISPLATIN [Suspect]
     Indication: NON-SMALL CELL LUNG CANCER
     Dates: start: 19971201, end: 19980101
  5. ETOPOSIDE [Suspect]
     Indication: NON-SMALL CELL LUNG CANCER
     Dates: start: 19971201, end: 19980101
  6. LORZAAR (LOSARTAN POTASSIUM) [Concomitant]
  7. BISOPROLOL FUMARATE [Concomitant]
  8. CORANGIN (ISOSORBIDE MONONITRATE) [Concomitant]

REACTIONS (5)
  - DISEASE PROGRESSION [None]
  - HAEMOPTYSIS [None]
  - METASTASES TO LIVER [None]
  - METASTASES TO SOFT TISSUE [None]
  - PARAPROTEINAEMIA [None]
